FAERS Safety Report 13915561 (Version 1)
Quarter: 2017Q3

REPORT INFORMATION
  Report Type: Spontaneous
  Country: US (occurrence: US)
  Receive Date: 20170828
  Receipt Date: 20170828
  Transmission Date: 20171127
  Serious: Yes (Disabling)
  Sender: FDA-Public Use
  Company Number: None

PATIENT
  Sex: Female
  Weight: 41.85 kg

DRUGS (7)
  1. HAWTHORNE BERRIES [Concomitant]
  2. MOTRIN [Concomitant]
     Active Substance: IBUPROFEN
  3. VALIUM [Concomitant]
     Active Substance: DIAZEPAM
  4. VERSED [Suspect]
     Active Substance: MIDAZOLAM HYDROCHLORIDE
     Indication: SURGERY
  5. TYLENOL [Concomitant]
     Active Substance: ACETAMINOPHEN
  6. CO ENZYME 10 [Concomitant]
  7. ZOFRAN [Concomitant]
     Active Substance: ONDANSETRON HYDROCHLORIDE

REACTIONS (2)
  - Post-traumatic stress disorder [None]
  - Sleep terror [None]
